FAERS Safety Report 4642177-9 (Version None)
Quarter: 2005Q2

REPORT INFORMATION
  Report Type: 
  Country: None (occurrence: None)
  Receive Date: 20050422
  Receipt Date: 20040213
  Transmission Date: 20051028
  Serious: No
  Sender: FDA-Public Use
  Company Number: 200410348JP

PATIENT
  Age: 41 Year
  Sex: Female
  Weight: 41 kg

DRUGS (5)
  1. ARAVA [Suspect]
     Indication: RHEUMATOID ARTHRITIS
     Route: 048
     Dates: start: 20040107, end: 20040121
  2. PREDONINE [Concomitant]
     Indication: RHEUMATOID ARTHRITIS
     Route: 048
     Dates: start: 20031029
  3. AZULFIDINE [Concomitant]
     Indication: RHEUMATOID ARTHRITIS
     Route: 048
  4. OMEPRAL [Concomitant]
     Indication: RHEUMATOID ARTHRITIS
     Route: 048
  5. VOLTAREN SUPPOSITORIEN [Concomitant]
     Indication: RHEUMATOID ARTHRITIS
     Route: 054

REACTIONS (2)
  - ANAEMIA [None]
  - MENORRHAGIA [None]
